FAERS Safety Report 5106258-8 (Version None)
Quarter: 2006Q3

REPORT INFORMATION
  Report Type: 
  Country: None (occurrence: None)
  Receive Date: 20060912
  Receipt Date: 20060830
  Transmission Date: 20061208
  Serious: Yes (Life-Threatening, Disabling)
  Sender: FDA-Public Use
  Company Number: 9702481

PATIENT
  Age: 40 Year
  Sex: Female
  Weight: 42 kg

DRUGS (2)
  1. FELDENE [Suspect]
     Indication: PERIARTHRITIS
     Dosage: 20 MG (20 MG, 1 IN 1 D), ORAL
     Route: 048
     Dates: start: 19960915, end: 19970130
  2. ZANTAC [Concomitant]

REACTIONS (4)
  - CROHN'S DISEASE [None]
  - GASTRIC ULCER [None]
  - HAEMATOCHEZIA [None]
  - WEIGHT DECREASED [None]
